FAERS Safety Report 11358865 (Version 1)
Quarter: 2015Q3

REPORT INFORMATION
  Report Type: Spontaneous
  Country: US (occurrence: None)
  Receive Date: 20150807
  Receipt Date: 20150807
  Transmission Date: 20151125
  Serious: Yes (Other)
  Sender: FDA-Public Use
  Company Number: None

PATIENT
  Age: 64 Year
  Sex: Male
  Weight: 95.26 kg

DRUGS (18)
  1. ATORVASTATIN CALCIUM. [Concomitant]
     Active Substance: ATORVASTATIN CALCIUM
  2. MIRTAZAPINE. [Concomitant]
     Active Substance: MIRTAZAPINE
  3. ADCIRCA [Suspect]
     Active Substance: TADALAFIL
     Indication: PULMONARY HYPERTENSION
     Dosage: 2 PILLS QD ORAL
     Route: 048
  4. ASPIRIN. [Concomitant]
     Active Substance: ASPIRIN
  5. DENTL CREAM [Concomitant]
  6. OMEPRAZOLE. [Concomitant]
     Active Substance: OMEPRAZOLE
  7. INV STUDYTADALAFIL VS PLACEBO [Concomitant]
  8. LISINOPRIL. [Concomitant]
     Active Substance: LISINOPRIL
  9. ASPIRIN/DIPYRIDAMOLE [Concomitant]
     Active Substance: ASPIRIN\DIPYRIDAMOLE
  10. LORATADINE. [Concomitant]
     Active Substance: LORATADINE
  11. METOPROLOL TARTRATE. [Concomitant]
     Active Substance: METOPROLOL TARTRATE
  12. FUROSEMIDE. [Concomitant]
     Active Substance: FUROSEMIDE
  13. TIOTROPIUM [Concomitant]
     Active Substance: TIOTROPIUM
  14. SERTRALINE HCL [Concomitant]
     Active Substance: SERTRALINE HYDROCHLORIDE
  15. BUDESONIDE/FORMOTER [Concomitant]
  16. SODIUM FLUORIDE. [Suspect]
     Active Substance: SODIUM FLUORIDE
  17. ARTIFICIAL TEARS PVA/POVIDONE (PF) [Concomitant]
  18. ALBUTEROL. [Concomitant]
     Active Substance: ALBUTEROL

REACTIONS (2)
  - Dyspnoea [None]
  - Nasopharyngitis [None]

NARRATIVE: CASE EVENT DATE: 20150710
